FAERS Safety Report 8123832-5 (Version None)
Quarter: 2012Q1

REPORT INFORMATION
  Report Type: 
  Country: None (occurrence: None)
  Receive Date: 20120209
  Receipt Date: 20120131
  Transmission Date: 20120608
  Serious: Yes (Hospitalization, Other)
  Sender: FDA-Public Use
  Company Number: US-ASTRAZENECA-2012SE06481

PATIENT
  Age: 50 Year
  Sex: Female
  Weight: 50.8 kg

DRUGS (2)
  1. NEXIUM [Suspect]
     Indication: GASTROOESOPHAGEAL REFLUX DISEASE
     Route: 048
  2. COUMADIN [Concomitant]
     Indication: CEREBROVASCULAR ACCIDENT
     Route: 048

REACTIONS (4)
  - OFF LABEL USE [None]
  - GASTRIC ULCER [None]
  - CEREBROVASCULAR ACCIDENT [None]
  - HYPERCHLORHYDRIA [None]
